FAERS Safety Report 6274690-5 (Version None)
Quarter: 2009Q3

REPORT INFORMATION
  Report Type: 
  Country: None (occurrence: None)
  Receive Date: 20090721
  Receipt Date: 20070611
  Transmission Date: 20100115
  Serious: Yes (Other)
  Sender: FDA-Public Use
  Company Number: US-ASTRAZENECA-2006UW11089

PATIENT
  Age: 41 Year
  Sex: Female
  Weight: 104.3 kg

DRUGS (24)
  1. SEROQUEL [Suspect]
     Indication: DEPRESSION
     Dosage: 25-30MG
     Route: 048
     Dates: start: 20040603
  2. CELEXA [Concomitant]
  3. CYCLOBENZAPRINE [Concomitant]
     Dates: start: 20001216
  4. DIAZEPAM [Concomitant]
     Dates: start: 20010312
  5. HYDROXYZINE [Concomitant]
     Indication: ANXIETY
     Dosage: 25 MG AS NEEDED
     Dates: start: 19921006
  6. AVANDIA [Concomitant]
     Dosage: 4-8 MG
     Dates: start: 20011112
  7. NEXIUM [Concomitant]
     Dates: start: 20040807
  8. HYDROCHLOROTHIAZIDE [Concomitant]
     Dates: start: 20040809
  9. SKELAXIN [Concomitant]
     Dates: start: 20040812
  10. NAPROXEN [Concomitant]
     Dates: start: 20040812
  11. LABETALOL HCL [Concomitant]
     Indication: HYPERTENSION
     Dates: start: 20040814
  12. SYNTHROID [Concomitant]
     Indication: HYPOTHYROIDISM
     Dates: start: 19921006
  13. EFFEXOR XR [Concomitant]
     Dosage: 37.5-75 MG
     Dates: start: 20041105
  14. CITALOPRAM HYDROBROMIDE [Concomitant]
     Dosage: 20-40 MG
     Dates: start: 20050225
  15. ZOCOR [Concomitant]
     Dates: start: 20050412
  16. TRAMADOL HYDROCHLORIDE [Concomitant]
     Dates: start: 20051123
  17. LYRICA [Concomitant]
     Dates: start: 20060311
  18. LORAZEPAM [Concomitant]
     Dates: start: 20060328
  19. PROMETHAZINE [Concomitant]
     Dates: start: 20060704
  20. ACYCLOVIR [Concomitant]
     Dosage: 400-800 MG
     Dates: start: 20060704
  21. GABAPENTIN [Concomitant]
     Dates: start: 20060724
  22. LISINOPRIL [Concomitant]
     Dates: start: 20070120
  23. REMERON [Concomitant]
     Dates: start: 20040603
  24. LAMICTAL [Concomitant]
     Dates: start: 20041023

REACTIONS (2)
  - DIABETES MELLITUS [None]
  - DIABETIC NEUROPATHY [None]
